FAERS Safety Report 5269885-3 (Version None)
Quarter: 2007Q1

REPORT INFORMATION
  Report Type: 
  Country: None (occurrence: None)
  Receive Date: 20061218
  Receipt Date: 20060714
  Transmission Date: 20070707
  Serious: Yes (Hospitalization)
  Sender: FDA-Public Use
  Company Number: US200607002540

PATIENT
  Age: 37 Year
  Sex: Female

DRUGS (2)
  1. HUMALOG [Suspect]
     Indication: DIABETES MELLITUS
     Dosage: SUBCUTANEOUS
     Route: 058
     Dates: start: 19950101
  2. HUMULIN N [Suspect]
     Dosage: SUBCUTANEOUS
     Route: 058
     Dates: start: 19950101

REACTIONS (3)
  - BLOOD GLUCOSE INCREASED [None]
  - CELLULITIS [None]
  - NEUROPATHY [None]
